FAERS Safety Report 12730927 (Version 1)
Quarter: 2016Q3

REPORT INFORMATION
  Report Type: Spontaneous
  Country: US (occurrence: US)
  Receive Date: 20160909
  Receipt Date: 20160909
  Transmission Date: 20161109
  Serious: Yes (Other)
  Sender: FDA-Public Use
  Company Number: None

PATIENT
  Age: 52 Year
  Sex: Male
  Weight: 92.08 kg

DRUGS (8)
  1. VALSARTAN. [Concomitant]
     Active Substance: VALSARTAN
  2. NOVOLOG [Concomitant]
     Active Substance: INSULIN ASPART
  3. METFORMIN - GLUCOFAGE [Suspect]
     Active Substance: METFORMIN HYDROCHLORIDE
     Indication: DIABETES MELLITUS
     Dosage: 1000 MG 2 PILLS A DAY 2 PILLS A DAY BY MOUTH
     Route: 048
     Dates: start: 20130413, end: 20150901
  4. LANTUS [Concomitant]
     Active Substance: INSULIN GLARGINE
  5. FENOFIBRATE. [Concomitant]
     Active Substance: FENOFIBRATE
  6. RA HIGH CAL PLUS VITAMIN D [Concomitant]
  7. GABAPENTIN. [Concomitant]
     Active Substance: GABAPENTIN
  8. VITAMINS [Concomitant]
     Active Substance: VITAMINS

REACTIONS (2)
  - Diarrhoea [None]
  - Abdominal pain [None]
